FAERS Safety Report 8532936-4 (Version None)
Quarter: 2012Q3

REPORT INFORMATION
  Report Type: 
  Country: None (occurrence: None)
  Receive Date: 20120724
  Receipt Date: 20110819
  Transmission Date: 20120928
  Serious: Yes (Hospitalization)
  Sender: FDA-Public Use
  Company Number: AT-ASTELLAS-2011US005239

PATIENT
  Sex: Female
  Weight: 59 kg

DRUGS (3)
  1. ZOMETA [Concomitant]
     Indication: METASTASES TO BONE
     Dosage: UNKM, Q4 WKS
     Route: 042
     Dates: start: 20090601
  2. ERLOTINIB HYDROCHLORIDE [Suspect]
     Indication: BRONCHIAL DISORDER
     Dosage: 150 MG, UID/QD
     Dates: start: 20091201
  3. MARCUMAR [Concomitant]
     Indication: THROMBOSIS
     Dosage: UNK, 2.0-3.0
     Route: 065
     Dates: start: 20090501

REACTIONS (1)
  - SCIATICA [None]
